FAERS Safety Report 10695032 (Version 1)
Quarter: 2015Q1

REPORT INFORMATION
  Report Type: Spontaneous
  Country: US (occurrence: None)
  Receive Date: 20150105
  Receipt Date: 20150105
  Transmission Date: 20150721
  Serious: Yes (Other)
  Sender: FDA-Public Use
  Company Number: ABR_01908_2014

PATIENT
  Age: 40 Year
  Sex: Male
  Weight: 117.94 kg

DRUGS (1)
  1. EDARBI [Suspect]
     Active Substance: AZILSARTAN KAMEDOXOMIL
     Indication: HYPERTENSION
     Route: 048
     Dates: start: 201411, end: 20141219

REACTIONS (2)
  - Withdrawal hypertension [None]
  - Rash [None]

NARRATIVE: CASE EVENT DATE: 201411
